FAERS Safety Report 10138049 (Version 2)
Quarter: 2014Q2

REPORT INFORMATION
  Report Type: Spontaneous
  Country: US (occurrence: None)
  Receive Date: 20140425
  Receipt Date: 20140515
  Transmission Date: 20141212
  Serious: Yes (Hospitalization)
  Sender: FDA-Public Use
  Company Number: UTC-045929

PATIENT
  Age: 60 Year
  Sex: Female
  Weight: 54.43 kg

DRUGS (3)
  1. REMODULIN [Suspect]
     Indication: COR PULMONALE CHRONIC
     Dosage: 28.8 UG/KG (0.02 UG/KG,1 IN 1 MIN), SUBCUTANEOUS
     Route: 058
     Dates: start: 20100826
  2. LETAIRIS (AMBRISENTAN) [Concomitant]
  3. REVATIO (SILDENAFIL CITRATE) [Concomitant]

REACTIONS (3)
  - Therapeutic procedure [None]
  - Device malfunction [None]
  - Treatment noncompliance [None]
